FAERS Safety Report 6569288-5 (Version None)
Quarter: 2010Q1

REPORT INFORMATION
  Report Type: 
  Country: None (occurrence: None)
  Receive Date: 20100201
  Receipt Date: 20100201
  Transmission Date: 20100710
  Serious: Yes (Other)
  Sender: FDA-Public Use
  Company Number: None

PATIENT
  Sex: Female

DRUGS (1)
  1. VYTORIN [Suspect]
     Indication: HYPERCHOLESTEROLAEMIA
     Dosage: 10/40 ONCE A DAY PO
     Route: 048
     Dates: start: 20061001, end: 20091123

REACTIONS (7)
  - AMNESIA [None]
  - BURNING SENSATION [None]
  - CHOKING [None]
  - CONDITION AGGRAVATED [None]
  - DEPRESSION [None]
  - DIARRHOEA [None]
  - PHARYNGEAL OEDEMA [None]
